FAERS Safety Report 5325025-3 (Version None)
Quarter: 2007Q2

REPORT INFORMATION
  Report Type: 
  Country: None (occurrence: None)
  Receive Date: 20070510
  Receipt Date: 20070510
  Transmission Date: 20071010
  Serious: No
  Sender: FDA-Public Use
  Company Number: None

PATIENT
  Age: 45 Year
  Sex: Male
  Weight: 90 kg

DRUGS (2)
  1. CLOBETASOL PROPIONATE [Suspect]
     Dates: start: 20070315, end: 20070404
  2. CLOBETASOL PROPIONATE [Suspect]
     Dates: start: 20070503, end: 20070505

REACTIONS (1)
  - BLOOD PRESSURE INCREASED [None]
